FAERS Safety Report 22298350 (Version 37)
Quarter: 2023Q4

REPORT INFORMATION
  Report Type: Spontaneous
  Country: CA (occurrence: CA)
  Receive Date: 20230509
  Receipt Date: 20231229
  Transmission Date: 20240110
  Serious: Yes (Death, Life-Threatening, Hospitalization, Disabling, Other)
  Sender: FDA-Public Use
  Company Number: DE-ROCHE-2784989

PATIENT
  Age: 80 Year
  Sex: Male
  Weight: 69 kg

DRUGS (32)
  1. BUDESONIDE [Suspect]
     Active Substance: BUDESONIDE
     Indication: Product used for unknown indication
     Route: 065
  2. MOVIPREP [Suspect]
     Active Substance: ASCORBIC ACID\POLYETHYLENE GLYCOL 3350\POTASSIUM CHLORIDE\SODIUM ASCORBATE\SODIUM CHLORIDE\SODIUM SU
     Indication: Constipation
     Dosage: 17MG QD,17(UNK),17MG,QD,3MG,1/WK,ASCORBIC ACID;MACROGOL3350;KCL;SODIUM ASCORBATE;NACL;SODIUM SULFATE
     Route: 048
  3. MOVIPREP [Suspect]
     Active Substance: ASCORBIC ACID\POLYETHYLENE GLYCOL 3350\POTASSIUM CHLORIDE\SODIUM ASCORBATE\SODIUM CHLORIDE\SODIUM SU
     Indication: Off label use
     Route: 042
  4. MOVIPREP [Suspect]
     Active Substance: ASCORBIC ACID\POLYETHYLENE GLYCOL 3350\POTASSIUM CHLORIDE\SODIUM ASCORBATE\SODIUM CHLORIDE\SODIUM SU
     Route: 042
  5. PHYTONADIONE [Suspect]
     Active Substance: PHYTONADIONE
     Indication: Vitamin supplementation
     Route: 065
  6. PHYTONADIONE [Suspect]
     Active Substance: PHYTONADIONE
     Indication: Off label use
     Route: 065
  7. PHYTONADIONE [Suspect]
     Active Substance: PHYTONADIONE
     Dosage: VITAMIN K1
     Route: 065
  8. METRONIDAZOLE [Suspect]
     Active Substance: METRONIDAZOLE
     Indication: Product used for unknown indication
     Route: 065
  9. METRONIDAZOLE [Suspect]
     Active Substance: METRONIDAZOLE
     Indication: Off label use
  10. METRONIDAZOLE [Suspect]
     Active Substance: METRONIDAZOLE
     Indication: Intentional product misuse
  11. METRONIDAZOLE [Suspect]
     Active Substance: METRONIDAZOLE
     Indication: Bacterial infection
  12. MESALAMINE [Suspect]
     Active Substance: MESALAMINE
     Indication: Product used for unknown indication
     Dosage: NOT SPECIFIED
     Route: 065
  13. EFINACONAZOLE [Suspect]
     Active Substance: EFINACONAZOLE
     Indication: Product used for unknown indication
     Route: 061
  14. EFINACONAZOLE [Suspect]
     Active Substance: EFINACONAZOLE
  15. ALBUTEROL [Suspect]
     Active Substance: ALBUTEROL
     Indication: Chronic obstructive pulmonary disease
     Dosage: 1. RESPIRATORY 1 DF QD, 2. RESPIRATORY 1 DF IN 6 HOURS, 3. ENDOSINUSIAL 4. DOSE 100 UG 5. 4DF QD
     Route: 055
  16. ALBUTEROL [Suspect]
     Active Substance: ALBUTEROL
     Indication: Off label use
     Dosage: SALBUTAMOL SULFATE 1. RESPIRATORY 1 DF QD, 2. RESPIRATORY 1 DF IN 6 HOURS, 3. ENDOSINUSIAL
     Route: 055
  17. ALBUTEROL [Suspect]
     Active Substance: ALBUTEROL
     Indication: Intentional product misuse
     Dosage: SALBUTAMOL SULFATE 7. 4 DF, QD; UNKNOWN, 8. UNKNOWN, 9. 1 DF;, 10. 4 DF, Q6HR, 11. QD, 12. 4MG, QD
     Route: 065
  18. ALBUTEROL [Suspect]
     Active Substance: ALBUTEROL
     Indication: Prophylaxis
  19. ALBUTEROL [Suspect]
     Active Substance: ALBUTEROL
     Indication: Asthma
  20. IPRATROPIUM [Suspect]
     Active Substance: IPRATROPIUM
     Indication: Dyspnoea
     Dosage: 2. RESPIRATORY (INHALATION) 1 IN 1D 1DF 3. RESPIRATORY (INHALATION) 1 IN 6 HR.
     Route: 055
  21. IPRATROPIUM [Suspect]
     Active Substance: IPRATROPIUM
     Indication: Sleep disorder therapy
     Dosage: 4. 1 UNK INHA 5. OTHER, 6. ENDOSINUSIAL
     Route: 065
  22. IPRATROPIUM [Suspect]
     Active Substance: IPRATROPIUM
     Indication: Intentional product misuse
     Dosage: IPRATROPIUM BROMIDE
     Route: 050
  23. IPRATROPIUM [Suspect]
     Active Substance: IPRATROPIUM
     Dosage: IPRATROPIUM BROMIDE 8.1DF, Q8HR,OTHER9.1 DF,QD.
     Route: 050
  24. IPRATROPIUM [Suspect]
     Active Substance: IPRATROPIUM
     Dosage: IPRATROPIUM BROMIDE  QD
     Route: 065
  25. IPRATROPIUM [Suspect]
     Active Substance: IPRATROPIUM
     Dosage: IPRATROPIUM BROMIDE
     Route: 055
  26. NITROGLYCERIN [Suspect]
     Active Substance: NITROGLYCERIN
     Indication: Product used for unknown indication
     Route: 065
  27. HYDROCORTISONE ACETATE [Suspect]
     Active Substance: HYDROCORTISONE ACETATE
     Indication: Product used for unknown indication
     Route: 065
  28. ALBUTEROL SULFATE [Suspect]
     Active Substance: ALBUTEROL SULFATE
     Indication: Asthma
     Dosage: METERED-DOSE (AEROSOL)
     Route: 065
  29. JUBLIA [Suspect]
     Active Substance: EFINACONAZOLE
     Indication: Product used for unknown indication
     Route: 061
  30. JUBLIA [Suspect]
     Active Substance: EFINACONAZOLE
     Route: 061
  31. RAMIPRIL [Suspect]
     Active Substance: RAMIPRIL
     Indication: Prophylaxis
     Route: 065
  32. RAMIPRIL [Suspect]
     Active Substance: RAMIPRIL
     Indication: Asthma
     Dosage: NOT SPECIFIED
     Route: 048

REACTIONS (96)
  - Anticoagulant therapy [Fatal]
  - Death [Fatal]
  - Appendicolith [Fatal]
  - Sepsis [Fatal]
  - Multiple organ dysfunction syndrome [Fatal]
  - General physical health deterioration [Fatal]
  - Ascites [Fatal]
  - Appendicitis [Fatal]
  - Stress [Fatal]
  - Cardiogenic shock [Fatal]
  - Ventricular fibrillation [Fatal]
  - Nausea [Fatal]
  - Condition aggravated [Fatal]
  - Constipation [Fatal]
  - Vomiting [Fatal]
  - Aspartate aminotransferase increased [Fatal]
  - Hyperphosphataemia [Fatal]
  - Somnolence [Fatal]
  - Dry mouth [Fatal]
  - Anaemia [Fatal]
  - Aspiration [Fatal]
  - Asthenia [Fatal]
  - Asthma [Fatal]
  - Blood creatinine increased [Fatal]
  - Blood test abnormal [Fatal]
  - Bronchiectasis [Fatal]
  - Bronchopulmonary aspergillosis allergic [Fatal]
  - End stage renal disease [Fatal]
  - Fatigue [Fatal]
  - Haemoptysis [Fatal]
  - Hypoxia [Fatal]
  - Lower respiratory tract infection [Fatal]
  - Lung opacity [Fatal]
  - Musculoskeletal stiffness [Fatal]
  - Obstructive airways disorder [Fatal]
  - Pain [Fatal]
  - Pleural effusion [Fatal]
  - Pneumonia [Fatal]
  - Pulmonary fibrosis [Fatal]
  - Rales [Fatal]
  - Sputum discoloured [Fatal]
  - Total lung capacity decreased [Fatal]
  - Upper respiratory tract infection [Fatal]
  - Blood calcium increased [Fatal]
  - Liver function test increased [Fatal]
  - Pyrexia [Fatal]
  - Transaminases increased [Fatal]
  - Abdominal pain upper [Fatal]
  - Aortic stenosis [Fatal]
  - Headache [Fatal]
  - Myasthenia gravis [Fatal]
  - Hyperlipidaemia [Fatal]
  - Gout [Fatal]
  - Pulmonary mass [Fatal]
  - Wheezing [Fatal]
  - Drug therapy [Fatal]
  - Diabetes mellitus [Fatal]
  - Thrombosis [Fatal]
  - Sleep disorder [Fatal]
  - Analgesic therapy [Fatal]
  - Neuralgia [Fatal]
  - Bacterial infection [Fatal]
  - Swelling [Fatal]
  - Drug hypersensitivity [Fatal]
  - Pulmonary embolism [Fatal]
  - Activated partial thromboplastin time prolonged [Fatal]
  - Chronic obstructive pulmonary disease [Fatal]
  - Hypophosphataemia [Fatal]
  - Tremor [Fatal]
  - Oedema peripheral [Fatal]
  - Sleep disorder therapy [Fatal]
  - Ulcer [Fatal]
  - Gastrooesophageal reflux disease [Fatal]
  - Abdominal distension [Fatal]
  - Hyponatraemia [Fatal]
  - Transient ischaemic attack [Unknown]
  - Micturition urgency [Unknown]
  - Malignant melanoma in situ [Unknown]
  - Joint injury [Unknown]
  - Drug intolerance [Fatal]
  - Full blood count abnormal [Unknown]
  - Hypertension [Fatal]
  - Hypercholesterolaemia [Fatal]
  - Dyspnoea exertional [Fatal]
  - Coronary artery disease [Unknown]
  - Congenital hiatus hernia [Unknown]
  - Benign prostatic hyperplasia [Unknown]
  - Breath sounds abnormal [Unknown]
  - Antacid therapy [Fatal]
  - Pleuritic pain [Unknown]
  - Drug ineffective [Fatal]
  - Product use in unapproved indication [Fatal]
  - Off label use [Fatal]
  - Product dose omission issue [Fatal]
  - Intentional product misuse [Fatal]
  - Incorrect route of product administration [Fatal]

NARRATIVE: CASE EVENT DATE: 20200601
